FAERS Safety Report 6897183-0 (Version None)
Quarter: 2010Q3

REPORT INFORMATION
  Report Type: 
  Country: None (occurrence: None)
  Receive Date: 20100802
  Receipt Date: 20070323
  Transmission Date: 20110219
  Serious: No
  Sender: FDA-Public Use
  Company Number: US-PFIZER INC-2007023961

PATIENT
  Sex: Female
  Weight: 68 kg

DRUGS (9)
  1. LYRICA [Suspect]
     Indication: FIBROMYALGIA
     Dates: start: 20060901
  2. LYRICA [Suspect]
     Indication: ARTHRALGIA
  3. HYDROCODONE BITARTRATE [Concomitant]
  4. ALL OTHER THERAPEUTIC PRODUCTS [Concomitant]
  5. LASIX [Concomitant]
  6. CYMBALTA [Concomitant]
  7. LIPITOR [Concomitant]
  8. COZAAR [Concomitant]
  9. XANAX [Concomitant]

REACTIONS (6)
  - BURNING SENSATION [None]
  - EMOTIONAL DISORDER [None]
  - INSOMNIA [None]
  - OEDEMA PERIPHERAL [None]
  - STRESS [None]
  - WEIGHT INCREASED [None]
